FAERS Safety Report 9919408 (Version 2)
Quarter: 2014Q1

REPORT INFORMATION
  Report Type: Spontaneous
  Country: JP (occurrence: JP)
  Receive Date: 20140224
  Receipt Date: 20140304
  Transmission Date: 20141002
  Serious: Yes (Hospitalization)
  Sender: FDA-Public Use
  Company Number: JP-SA-2014SA019523

PATIENT
  Age: 71 Year
  Sex: Female

DRUGS (1)
  1. BCG FOR IMMUNOTHERAPY [Suspect]
     Indication: BLADDER CANCER
     Route: 043

REACTIONS (15)
  - Reiter^s syndrome [Recovered/Resolved]
  - Eye discharge [Recovered/Resolved]
  - Conjunctival hyperaemia [Recovered/Resolved]
  - Eyelid oedema [Recovered/Resolved]
  - Foreign body sensation in eyes [Recovered/Resolved]
  - Pyrexia [Recovered/Resolved]
  - Polyarthritis [Recovered/Resolved]
  - Temporomandibular joint syndrome [Recovered/Resolved]
  - Neck pain [Recovering/Resolving]
  - Gait disturbance [Recovered/Resolved]
  - Dysuria [Recovered/Resolved]
  - Pollakiuria [Recovered/Resolved]
  - Lung neoplasm malignant [Unknown]
  - Metastases to kidney [Unknown]
  - Eating disorder [Recovered/Resolved]
